FAERS Safety Report 19518930 (Version 2)
Quarter: 2023Q1

REPORT INFORMATION
  Report Type: Spontaneous
  Country: DE (occurrence: DE)
  Receive Date: 20210712
  Receipt Date: 20230119
  Transmission Date: 20230417
  Serious: Yes (Hospitalization)
  Sender: FDA-Public Use
  Company Number: DE-ADRED-06603-01

PATIENT
  Age: 63 Year
  Sex: Male
  Weight: 89 kg

DRUGS (10)
  1. BISOPROLOL [Suspect]
     Active Substance: BISOPROLOL
     Indication: Product used for unknown indication
     Dosage: 5 MILLIGRAM, ONCE A DAY (1-0-0-0)
     Route: 048
  2. ESCITALOPRAM OXALATE [Suspect]
     Active Substance: ESCITALOPRAM OXALATE
     Indication: Product used for unknown indication
     Dosage: 10 MILLIGRAM, ONCE A DAY (3-0-0-0)
     Route: 048
  3. IVABRADINE [Suspect]
     Active Substance: IVABRADINE
     Indication: Product used for unknown indication
     Dosage: 5 MILLIGRAM, TWO TIMES A DAY (2-0-2-0, )
     Route: 048
  4. ALPRAZOLAM [Suspect]
     Active Substance: ALPRAZOLAM
     Indication: Product used for unknown indication
     Dosage: 1 MILLIGRAM, TWO TIMES A DAY (2-0-1-0)
     Route: 048
  5. BUPROPION [Suspect]
     Active Substance: BUPROPION
     Indication: Product used for unknown indication
     Dosage: 300 MILLIGRAM, ONCE A DAY (1-0-0-0, TVW )
     Route: 048
  6. ASPIRIN [Concomitant]
     Active Substance: ASPIRIN
     Indication: Product used for unknown indication
     Dosage: 100 MILLIGRAM, ONCE A DAY (0-1-0-0)
     Route: 048
  7. AMLODIPINE BESYLATE [Concomitant]
     Active Substance: AMLODIPINE BESYLATE
     Indication: Product used for unknown indication
     Dosage: 5 MILLIGRAM, ONCE A DAY (0-0-1-0)
     Route: 048
  8. ATORVASTATIN [Concomitant]
     Active Substance: ATORVASTATIN
     Indication: Product used for unknown indication
     Dosage: 40 MILLIGRAM, ONCE A DAY (0-0-1-0)
     Route: 048
  9. BUSPIRONE [Concomitant]
     Active Substance: BUSPIRONE HYDROCHLORIDE
     Indication: Product used for unknown indication
     Dosage: 5 MILLIGRAM, TWO TIMES A DAY (4-0-2-0)
     Route: 048
  10. TAMSULOSIN [Concomitant]
     Active Substance: TAMSULOSIN
     Indication: Product used for unknown indication
     Dosage: 0.4 MILLIGRAM, ONCE A DAY (, 0-0-1-0)
     Route: 048

REACTIONS (4)
  - Fracture [Unknown]
  - Fall [Unknown]
  - Back pain [Unknown]
  - Product prescribing error [Unknown]
